FAERS Safety Report 16697059 (Version 19)
Quarter: 2025Q1

REPORT INFORMATION
  Report Type: Spontaneous
  Country: US (occurrence: US)
  Receive Date: 20190813
  Receipt Date: 20250220
  Transmission Date: 20250409
  Serious: Yes (Other)
  Sender: PFIZER
  Company Number: US-PFIZER INC-2019225604

PATIENT
  Age: 66 Year
  Sex: Male
  Weight: 88.889 kg

DRUGS (9)
  1. BOSULIF [Suspect]
     Active Substance: BOSUTINIB MONOHYDRATE
     Indication: Chronic myeloid leukaemia
     Dates: start: 20180121
  2. BOSULIF [Suspect]
     Active Substance: BOSUTINIB MONOHYDRATE
     Dosage: TAKE 200 MG, DAILY/200 MG PO ONCE DAILY WITH FOOD.
     Route: 048
  3. BOSULIF [Suspect]
     Active Substance: BOSUTINIB MONOHYDRATE
     Dates: start: 20180213
  4. AMLODIPINE [Concomitant]
     Active Substance: AMLODIPINE BESYLATE
     Dosage: 10 MG, DAILY
  5. PROZAC [Concomitant]
     Active Substance: FLUOXETINE HYDROCHLORIDE
     Indication: Depression
     Dosage: 20 MG, DAILY
  6. PRAVASTATIN [Concomitant]
     Active Substance: PRAVASTATIN
     Dosage: 80 MG, DAILY
  7. ALLOPURINOL [Concomitant]
     Active Substance: ALLOPURINOL
  8. METOPROLOL [Concomitant]
     Active Substance: METOPROLOL
  9. METFORMIN [Concomitant]
     Active Substance: METFORMIN HYDROCHLORIDE

REACTIONS (11)
  - Pneumonia [Recovering/Resolving]
  - Nasopharyngitis [Unknown]
  - Anxiety [Not Recovered/Not Resolved]
  - Nervousness [Not Recovered/Not Resolved]
  - Headache [Recovered/Resolved]
  - Psychomotor hyperactivity [Unknown]
  - Abdominal discomfort [Unknown]
  - Diarrhoea [Unknown]
  - Nausea [Recovering/Resolving]
  - Tachycardia [Recovering/Resolving]
  - Dyspnoea [Recovering/Resolving]

NARRATIVE: CASE EVENT DATE: 20180101
